FAERS Safety Report 14640468 (Version 3)
Quarter: 2018Q4

REPORT INFORMATION
  Report Type: Spontaneous
  Country: US (occurrence: US)
  Receive Date: 20180315
  Receipt Date: 20181218
  Transmission Date: 20190204
  Serious: No
  Sender: FDA-Public Use
  Company Number: US-PFIZER INC-2018103594

PATIENT
  Age: 57 Year
  Sex: Female

DRUGS (2)
  1. ARAVA [Concomitant]
     Active Substance: LEFLUNOMIDE
     Dosage: UNK
  2. XELJANZ [Suspect]
     Active Substance: TOFACITINIB CITRATE
     Indication: RHEUMATOID ARTHRITIS
     Dosage: 5 MG, 2X/DAY

REACTIONS (7)
  - Blood cholesterol increased [Unknown]
  - Energy increased [Unknown]
  - Dizziness [Unknown]
  - Nasal congestion [Unknown]
  - Constipation [Unknown]
  - Sinus disorder [Unknown]
  - Weight increased [Recovered/Resolved]
